FAERS Safety Report 4853724-6 (Version None)
Quarter: 2005Q4

REPORT INFORMATION
  Report Type: 
  Country: None (occurrence: None)
  Receive Date: 20051212
  Receipt Date: 20051122
  Transmission Date: 20060501
  Serious: Yes (Disabling)
  Sender: FDA-Public Use
  Company Number: 384576

PATIENT
  Age: 22 Year
  Sex: Male
  Weight: 76.2 kg

DRUGS (1)
  1. ACCUTANE [Suspect]
     Indication: ACNE
     Dosage: ORAL
     Route: 048
     Dates: start: 19880615

REACTIONS (47)
  - ABSCESS INTESTINAL [None]
  - ACCIDENT AT WORK [None]
  - ANXIETY [None]
  - ARTHRALGIA [None]
  - ARTHRITIS [None]
  - BACK INJURY [None]
  - BIPOLAR DISORDER [None]
  - BLOOD PRESSURE INCREASED [None]
  - CATARACT [None]
  - CELLULITIS [None]
  - CHEST PAIN [None]
  - CHRONIC FATIGUE SYNDROME [None]
  - COLITIS [None]
  - COUGH [None]
  - CROHN'S DISEASE [None]
  - DECREASED APPETITE [None]
  - DEPRESSION [None]
  - DRUG ABUSER [None]
  - DRUG INEFFECTIVE [None]
  - DYSPEPSIA [None]
  - DYSPNOEA [None]
  - FAMILY STRESS [None]
  - FATIGUE [None]
  - GASTRITIS VIRAL [None]
  - GASTROINTESTINAL DISORDER [None]
  - GASTROOESOPHAGEAL REFLUX DISEASE [None]
  - HAEMORRHOIDS [None]
  - HIATUS HERNIA [None]
  - IMPAIRED WORK ABILITY [None]
  - INFLUENZA LIKE ILLNESS [None]
  - INSOMNIA [None]
  - INTERNAL INJURY [None]
  - INTESTINAL HAEMORRHAGE [None]
  - MOOD SWINGS [None]
  - MYOFASCIAL PAIN SYNDROME [None]
  - NASOPHARYNGITIS [None]
  - PARANASAL SINUS DISCOMFORT [None]
  - POLYP [None]
  - PULMONARY CONGESTION [None]
  - RASH [None]
  - RECTAL FISSURE [None]
  - RECTAL HAEMORRHAGE [None]
  - SELF INJURIOUS BEHAVIOUR [None]
  - SUICIDAL IDEATION [None]
  - THERAPY NON-RESPONDER [None]
  - TREATMENT NONCOMPLIANCE [None]
  - WEIGHT DECREASED [None]
